FAERS Safety Report 23891132 (Version 2)
Quarter: 2024Q2

REPORT INFORMATION
  Report Type: Spontaneous
  Country: NZ (occurrence: NZ)
  Receive Date: 20240523
  Receipt Date: 20240628
  Transmission Date: 20240716
  Serious: Yes (Other)
  Sender: FDA-Public Use
  Company Number: NZ-BEH-2024172451

PATIENT
  Age: 19 Year
  Sex: Female
  Weight: 125 kg

DRUGS (8)
  1. HUMAN IMMUNOGLOBULIN G [Suspect]
     Active Substance: HUMAN IMMUNOGLOBULIN G
     Indication: Thrombocytopenia
     Dosage: 71 ML
     Route: 042
     Dates: start: 20240509, end: 20240509
  2. CALCIUM [Concomitant]
     Active Substance: CALCIUM
     Indication: Hypertension
     Dosage: 1.5 MG, OD
     Route: 048
  3. IODINE [Concomitant]
     Active Substance: IODINE
     Indication: Pregnancy
     Dosage: 150 MCG, OD
     Route: 048
  4. RH(D) IMMUNOGLOBULIN-VF [Concomitant]
     Indication: Prophylaxis against Rh isoimmunisation
     Dosage: 625 IU
     Route: 030
     Dates: start: 20240313
  5. RH(D) IMMUNOGLOBULIN-VF [Concomitant]
     Dosage: 625 IU
     Route: 030
     Dates: start: 20240424
  6. ASPIRIN [Concomitant]
     Active Substance: ASPIRIN
     Indication: Prophylaxis
     Dosage: 100 MG, NOCTE
     Route: 048
  7. FOLIC ACID [Concomitant]
     Active Substance: FOLIC ACID
     Indication: Pregnancy
     Dosage: UNK, OD
     Route: 048
  8. MISOPROSTOL [Concomitant]
     Active Substance: MISOPROSTOL
     Indication: Labour induction
     Dosage: UNK
     Route: 048
     Dates: start: 20240509

REACTIONS (9)
  - Tachypnoea [Recovered/Resolved]
  - Pyrexia [Recovered/Resolved]
  - Tachycardia [Recovered/Resolved]
  - Nausea [Recovered/Resolved]
  - Vomiting [Recovered/Resolved]
  - Heart rate increased [Recovered/Resolved]
  - Blood pressure diastolic decreased [Recovered/Resolved]
  - Chills [Recovered/Resolved]
  - Maternal exposure during pregnancy [Unknown]

NARRATIVE: CASE EVENT DATE: 20240509
